FAERS Safety Report 23168105 (Version 1)
Quarter: 2023Q4

REPORT INFORMATION
  Report Type: Spontaneous
  Country: US (occurrence: US)
  Receive Date: 20231109
  Receipt Date: 20231109
  Transmission Date: 20240109
  Serious: Yes (Other)
  Sender: FDA-Public Use
  Company Number: US-BRISTOL-MYERS SQUIBB COMPANY-2023-155824

PATIENT
  Age: 76 Year
  Sex: Male

DRUGS (1)
  1. LENALIDOMIDE [Suspect]
     Active Substance: LENALIDOMIDE
     Indication: Plasma cell myeloma
     Dosage: HAS BEEN ON LENALIDOMIDE FOR 5 YEARS
     Dates: start: 2018

REACTIONS (4)
  - Mental disorder [Unknown]
  - Lung neoplasm malignant [Unknown]
  - Blood cholesterol abnormal [Unknown]
  - Diarrhoea [Unknown]
